FAERS Safety Report 17200728 (Version 2)
Quarter: 2020Q1

REPORT INFORMATION
  Report Type: Report from Study
  Country: IT (occurrence: IT)
  Receive Date: 20191226
  Receipt Date: 20200218
  Transmission Date: 20200409
  Serious: Yes (Other)
  Sender: FDA-Public Use
  Company Number: IT-TEVA-2019-IT-1157154

PATIENT
  Age: 78 Year
  Sex: Female

DRUGS (3)
  1. ACETYLSALICYLIC ACID [Suspect]
     Active Substance: ASPIRIN
     Indication: THROMBOSIS PROPHYLAXIS
     Dosage: 100 MG
     Route: 048
     Dates: end: 20191115
  2. ATENOLOLO/CLORTALIDONE [Suspect]
     Active Substance: ATENOLOL\CHLORTHALIDONE
     Indication: HYPERTENSION
     Route: 065
     Dates: start: 20180207, end: 20191115
  3. NORVASC [Suspect]
     Active Substance: AMLODIPINE BESYLATE
     Indication: HYPERTENSION
     Route: 048
     Dates: start: 20180207, end: 20191115

REACTIONS (5)
  - Tremor [Recovering/Resolving]
  - Vertigo [Recovering/Resolving]
  - Hypokalaemia [Recovering/Resolving]
  - Paraesthesia [Recovering/Resolving]
  - Hyperventilation [Recovering/Resolving]

NARRATIVE: CASE EVENT DATE: 20191115
